FAERS Safety Report 7776178-9 (Version None)
Quarter: 2011Q3

REPORT INFORMATION
  Report Type: 
  Country: None (occurrence: None)
  Receive Date: 20110926
  Receipt Date: 20110912
  Transmission Date: 20111222
  Serious: Yes (Hospitalization)
  Sender: FDA-Public Use
  Company Number: US-AMGEN-USASP2011041071

PATIENT
  Age: 83 Year
  Sex: Female
  Weight: 75.737 kg

DRUGS (4)
  1. PROCRIT [Suspect]
     Indication: HAEMOGLOBIN DECREASED
     Dosage: 20000 IU, UNK
     Dates: start: 20110609
  2. PROCRIT [Suspect]
     Dosage: 20000 IU, UNK
     Dates: start: 20110706
  3. PROCRIT [Suspect]
     Dosage: 20000 IU, UNK
     Dates: start: 20110720
  4. PROCRIT [Suspect]
     Dosage: 20000 IU, UNK
     Dates: start: 20110801

REACTIONS (2)
  - OEDEMA PERIPHERAL [None]
  - PAIN IN EXTREMITY [None]
